FAERS Safety Report 18595780 (Version 2)
Quarter: 2021Q1

REPORT INFORMATION
  Report Type: Spontaneous
  Country: US (occurrence: US)
  Receive Date: 20201209
  Receipt Date: 20210119
  Transmission Date: 20210419
  Serious: Yes (Life-Threatening, Hospitalization)
  Sender: FDA-Public Use
  Company Number: US-MYLANLABS-2020M1100606

PATIENT
  Age: 9 Month
  Sex: Female

DRUGS (11)
  1. CISATRACURIUM. [Concomitant]
     Active Substance: CISATRACURIUM
     Indication: MUSCLE RELAXANT THERAPY
     Dosage: 6 MICROGRAM/KILOGRAM, QMINUTE
     Route: 042
  2. MIDAZOLAM. [Concomitant]
     Active Substance: MIDAZOLAM
     Indication: ANAESTHESIA
     Dosage: 0.5 MILLIGRAM/KILOGRAM
     Route: 040
  3. DEXMEDETOMIDINE. [Interacting]
     Active Substance: DEXMEDETOMIDINE
     Dosage: 1 MICROGRAM/KILOGRAM, QH
     Route: 042
  4. FENTANYL. [Suspect]
     Active Substance: FENTANYL
     Dosage: 3 MICROGRAM/KILOGRAM, QH
     Route: 042
  5. CISATRACURIUM. [Concomitant]
     Active Substance: CISATRACURIUM
     Dosage: 8.5 MICROGRAM/KILOGRAM, QMINUTE
     Route: 042
  6. FENTANYL. [Suspect]
     Active Substance: FENTANYL
     Indication: ANAESTHESIA
     Dosage: 1 MICROGRAM/KILOGRAM, QH
     Route: 042
  7. DEXMEDETOMIDINE. [Interacting]
     Active Substance: DEXMEDETOMIDINE
     Indication: SEDATIVE THERAPY
     Dosage: 0.08 MICROGRAM/KILOGRAM
     Route: 040
  8. CISATRACURIUM. [Concomitant]
     Active Substance: CISATRACURIUM
     Dosage: 10 MICROGRAM/KILOGRAM, QMINUTE
     Route: 042
  9. FENTANYL. [Suspect]
     Active Substance: FENTANYL
     Dosage: 2 MICROGRAM/KILOGRAM, QH
     Route: 042
  10. TACROLIMUS. [Suspect]
     Active Substance: TACROLIMUS
     Indication: IMMUNOSUPPRESSANT DRUG THERAPY
     Dosage: UNK
     Route: 065
  11. FENTANYL. [Suspect]
     Active Substance: FENTANYL
     Dosage: 3 MICROGRAM/KILOGRAM
     Route: 040

REACTIONS (3)
  - Sinus bradycardia [Recovered/Resolved]
  - Sinus arrest [Recovered/Resolved]
  - Drug interaction [Recovered/Resolved]
